FAERS Safety Report 10622531 (Version 1)
Quarter: 2014Q4

REPORT INFORMATION
  Report Type: Spontaneous
  Country: US (occurrence: None)
  Receive Date: 20141202
  Receipt Date: 20141202
  Transmission Date: 20150529
  Serious: Yes (Other)
  Sender: FDA-Public Use
  Company Number: None

PATIENT
  Age: 66 Year
  Sex: Female
  Weight: 66.23 kg

DRUGS (2)
  1. CORICIDIN HBP [Suspect]
     Active Substance: ACETAMINOPHEN\CHLORPHENIRAMINE MALEATE
     Indication: NASOPHARYNGITIS
     Route: 048
     Dates: start: 20141128, end: 20141201
  2. CORICIDIN HBP [Suspect]
     Active Substance: ACETAMINOPHEN\CHLORPHENIRAMINE MALEATE
     Route: 048
     Dates: start: 20141128, end: 20141201

REACTIONS (5)
  - Swelling face [None]
  - Rash [None]
  - Eye swelling [None]
  - Local swelling [None]
  - Pruritus [None]

NARRATIVE: CASE EVENT DATE: 20141201
